FAERS Safety Report 10181536 (Version 1)
Quarter: 2014Q2

REPORT INFORMATION
  Report Type: Spontaneous
  Country: GB (occurrence: GB)
  Receive Date: 20140519
  Receipt Date: 20140519
  Transmission Date: 20141212
  Serious: Yes (Other)
  Sender: FDA-Public Use
  Company Number: GB-TEVA-481365ISR

PATIENT
  Sex: Male

DRUGS (5)
  1. AMIODARONE [Suspect]
     Dates: end: 201303
  2. WARFARIN [Interacting]
     Indication: ATRIAL FIBRILLATION
  3. WARFARIN [Interacting]
  4. LOSARTAN [Concomitant]
  5. OMEPRAZOLE [Concomitant]

REACTIONS (5)
  - Tremor [Unknown]
  - Drug interaction [Unknown]
  - International normalised ratio increased [Unknown]
  - Gait disturbance [Unknown]
  - Vitreous floaters [Unknown]
